FAERS Safety Report 19614028 (Version 1)
Quarter: 2021Q3

REPORT INFORMATION
  Report Type: Spontaneous
  Country: US (occurrence: US)
  Receive Date: 20210727
  Receipt Date: 20210727
  Transmission Date: 20211014
  Serious: Yes (Death)
  Sender: FDA-Public Use
  Company Number: US-DRREDDYS-SPO/USA/21/0138153

PATIENT
  Age: 6 Year
  Sex: Male

DRUGS (2)
  1. VIGABATRIN. [Suspect]
     Active Substance: VIGABATRIN
     Indication: INFANTILE SPASMS
     Route: 048
  2. VIGABATRIN. [Suspect]
     Active Substance: VIGABATRIN
     Dosage: G?TUBE

REACTIONS (2)
  - Death [Fatal]
  - Product administration error [Unknown]

NARRATIVE: CASE EVENT DATE: 20210612
